FAERS Safety Report 4782652-X (Version None)
Quarter: 2005Q3

REPORT INFORMATION
  Report Type: 
  Country: None (occurrence: None)
  Receive Date: 20050929
  Receipt Date: 20050607
  Transmission Date: 20060218
  Serious: No
  Sender: FDA-Public Use
  Company Number: 407218

PATIENT
  Age: 78 Year
  Sex: Male
  Weight: 61.4 kg

DRUGS (9)
  1. COREG [Suspect]
     Route: 048
     Dates: start: 19990505, end: 19990701
  2. ASACOL [Concomitant]
  3. FUROSEMIDE [Concomitant]
  4. FOLIC ACID [Concomitant]
  5. ASPIRIN [Concomitant]
  6. UNKNOWN MEDICATION [Concomitant]
  7. ROSIGLITAZONE [Concomitant]
  8. GLYBURIDE [Concomitant]
  9. DIGOXIN [Concomitant]

REACTIONS (1)
  - ADVERSE EVENT [None]
